FAERS Safety Report 16983351 (Version 1)
Quarter: 2019Q4

REPORT INFORMATION
  Report Type: Spontaneous
  Country: US (occurrence: US)
  Receive Date: 20191101
  Receipt Date: 20191101
  Transmission Date: 20200122
  Serious: No
  Sender: FDA-Public Use
  Company Number: US-BEH-2019108672

PATIENT
  Age: 44 Year
  Sex: Female

DRUGS (16)
  1. HAEGARDA [Suspect]
     Active Substance: HUMAN C1-ESTERASE INHIBITOR
     Indication: IMMUNODEFICIENCY
     Dosage: 4000 INTERNATIONAL UNIT, BIW
     Route: 058
     Dates: start: 20191008
  2. LUPRON [Concomitant]
     Active Substance: LEUPROLIDE ACETATE
  3. PROMETRIUM [Concomitant]
     Active Substance: PROGESTERONE
  4. FOLGARD RX [Concomitant]
  5. ESTRADIOL. [Concomitant]
     Active Substance: ESTRADIOL
  6. HYDROXYZINE HCL [Concomitant]
     Active Substance: HYDROXYZINE HYDROCHLORIDE
  7. VIVELLE-DOT [Concomitant]
     Active Substance: ESTRADIOL
  8. ASPIRIN. [Concomitant]
     Active Substance: ASPIRIN
  9. NP THYROID [Concomitant]
     Active Substance: LEVOTHYROXINE\LIOTHYRONINE
  10. BUPROPION HCL [Concomitant]
     Active Substance: BUPROPION HYDROCHLORIDE
  11. TRAZODONE [Concomitant]
     Active Substance: TRAZODONE HYDROCHLORIDE
  12. HAEGARDA [Suspect]
     Active Substance: HUMAN C1-ESTERASE INHIBITOR
     Indication: PROPHYLAXIS
  13. LORAZEPAM. [Concomitant]
     Active Substance: LORAZEPAM
  14. PREDNISONE. [Concomitant]
     Active Substance: PREDNISONE
  15. ACYCLOVIR [ACICLOVIR] [Concomitant]
     Active Substance: ACYCLOVIR
  16. CHORIONIC GONADOTR [Concomitant]

REACTIONS (3)
  - No adverse event [Unknown]
  - Injection site bruising [Not Recovered/Not Resolved]
  - Product use in unapproved indication [Unknown]
